FAERS Safety Report 9570384 (Version 2)
Quarter: 2014Q1

REPORT INFORMATION
  Report Type: Spontaneous
  Country: US (occurrence: US)
  Receive Date: 20130930
  Receipt Date: 20140102
  Transmission Date: 20141002
  Serious: No
  Sender: FDA-Public Use
  Company Number: US-AMGEN-USASP2013063713

PATIENT
  Age: 59 Year
  Sex: Female

DRUGS (4)
  1. ENBREL [Suspect]
     Indication: RHEUMATOID ARTHRITIS
     Dosage: 50 MG, QWK
     Route: 065
     Dates: start: 20130709, end: 2013
  2. ENBREL [Suspect]
     Dosage: UNK
     Route: 065
  3. PLAQUENIL                          /00072602/ [Concomitant]
     Dosage: 400MG WEEKLY, DURATION ABOUT 2 YEARS
  4. METHOTREXATE [Concomitant]
     Dosage: 15MG WEEKLY, UNKNOWN DURATION

REACTIONS (5)
  - Pain [Recovered/Resolved]
  - Local swelling [Recovered/Resolved]
  - Purulent discharge [Recovered/Resolved]
  - Bloody discharge [Recovered/Resolved]
  - Bacterial infection [Recovered/Resolved]
